FAERS Safety Report 7462593-X (Version None)
Quarter: 2011Q2

REPORT INFORMATION
  Report Type: 
  Country: None (occurrence: None)
  Receive Date: 20110506
  Receipt Date: 20110428
  Transmission Date: 20111010
  Serious: Yes (Congenital Anomaly)
  Sender: FDA-Public Use
  Company Number: GB-PFIZER INC-2011092487

PATIENT
  Sex: Male

DRUGS (3)
  1. CYCLOPHOSPHAMIDE [Suspect]
     Indication: BREAST CANCER
     Route: 064
  2. DOXORUBICIN HCL [Suspect]
     Indication: BREAST CANCER
     Route: 064
  3. FLUOROURACIL [Suspect]
     Indication: BREAST CANCER
     Route: 064

REACTIONS (7)
  - NERVOUS SYSTEM DISORDER [None]
  - SYNDACTYLY [None]
  - DRUG EXPOSURE DURING PREGNANCY [None]
  - BICUSPID AORTIC VALVE [None]
  - HIGH ARCHED PALATE [None]
  - CONGENITAL NOSE MALFORMATION [None]
  - BRAIN MALFORMATION [None]
